FAERS Safety Report 17617869 (Version 1)
Quarter: 2020Q2

REPORT INFORMATION
  Report Type: Report from Study
  Country: AR (occurrence: AR)
  Receive Date: 20200402
  Receipt Date: 20200402
  Transmission Date: 20200713
  Serious: Yes (Hospitalization)
  Sender: FDA-Public Use
  Company Number: NVSC2020AR074407

PATIENT
  Sex: Female

DRUGS (6)
  1. ENTRESTO [Suspect]
     Active Substance: SACUBITRIL\VALSARTAN
     Indication: HYPERTENSION
     Dosage: 1 OT, QD
     Route: 065
     Dates: end: 20200218
  2. ENTRESTO [Suspect]
     Active Substance: SACUBITRIL\VALSARTAN
     Dosage: 2 OT, QD
     Route: 065
     Dates: start: 20200218
  3. ASPIRIN. [Concomitant]
     Active Substance: ASPIRIN
     Indication: PRODUCT USED FOR UNKNOWN INDICATION
     Dosage: 1 DF, UNKNOWN (AT MIDMORNING)
     Route: 065
  4. ALDACTONE [Concomitant]
     Active Substance: SPIRONOLACTONE
     Indication: PRODUCT USED FOR UNKNOWN INDICATION
     Dosage: 25 MG, QD
     Route: 065
  5. CORBIS [Concomitant]
     Indication: PRODUCT USED FOR UNKNOWN INDICATION
     Dosage: 2.5 MG, QD (1/2, 5 MG)
     Route: 065
  6. LEVOTHYROXIN [Concomitant]
     Active Substance: LEVOTHYROXINE
     Indication: PRODUCT USED FOR UNKNOWN INDICATION
     Dosage: 88 MG, QD (DURING FASTING) MANY YEARS AGO
     Route: 065

REACTIONS (13)
  - Infarction [Recovering/Resolving]
  - Muscle injury [Unknown]
  - Coronary artery occlusion [Recovering/Resolving]
  - Blood pressure increased [Recovering/Resolving]
  - Product use in unapproved indication [Unknown]
  - Lip discolouration [Recovering/Resolving]
  - Chest pain [Recovering/Resolving]
  - Diarrhoea haemorrhagic [Unknown]
  - Dyspnoea [Unknown]
  - Incorrect dose administered [Unknown]
  - Back pain [Recovering/Resolving]
  - Anaemia [Unknown]
  - Memory impairment [Unknown]
